FAERS Safety Report 9357049 (Version 2)
Quarter: 2013Q2

REPORT INFORMATION
  Report Type: Spontaneous
  Country: US (occurrence: None)
  Receive Date: 20130617
  Receipt Date: 20130628
  Transmission Date: 20140414
  Serious: Yes (Hospitalization)
  Sender: FDA-Public Use
  Company Number: AMAG201300086

PATIENT
  Age: 82 Year
  Sex: Female

DRUGS (9)
  1. FERAHEME (FERUMOXYTOL) INJECTION, 510MG [Suspect]
     Indication: IRON DEFICIENCY ANAEMIA
     Dosage: 500 G, SINGLE, IV PUSH
     Route: 042
     Dates: start: 20130522, end: 20130522
  2. DIOVAN (VALSARTAN) [Concomitant]
  3. IMDUR (ISOSORBIDE MONONITRATE) [Concomitant]
  4. ZOLOFT (SERTRALINE HYDROCHLORIDE) [Concomitant]
  5. TOPROL (METOPROLOL SUCCINATE) [Concomitant]
  6. NEXIUM (ESOMEPRAZOLE SODIUM) [Concomitant]
  7. LASIX (FUROSEMIDE) [Concomitant]
  8. PLAVIX (CLOPIDOGREL BISULFATE) [Concomitant]
  9. OXYGEN (OXYGEN) [Concomitant]

REACTIONS (23)
  - Pneumonia klebsiella [None]
  - Pneumonia pseudomonas aeruginosa [None]
  - Klebsiella sepsis [None]
  - Pseudomonal sepsis [None]
  - Chills [None]
  - Pyrexia [None]
  - Hypersensitivity [None]
  - Nausea [None]
  - Respiratory distress [None]
  - Oxygen saturation decreased [None]
  - Muscle spasms [None]
  - Vomiting [None]
  - Dyspnoea [None]
  - Chronic obstructive pulmonary disease [None]
  - Pulmonary arterial hypertension [None]
  - Cardiac failure congestive [None]
  - Malnutrition [None]
  - Diarrhoea [None]
  - Pain [None]
  - Supraventricular tachycardia [None]
  - Renal failure acute [None]
  - Dehydration [None]
  - Thrombocytopenia [None]
